FAERS Safety Report 12054430 (Version 2)
Quarter: 2016Q1

REPORT INFORMATION
  Report Type: Spontaneous
  Country: US (occurrence: US)
  Receive Date: 20160209
  Receipt Date: 20160222
  Transmission Date: 20160526
  Serious: Yes (Hospitalization)
  Sender: FDA-Public Use
  Company Number: US-UCBSA-2016004300

PATIENT
  Age: 37 Year
  Sex: Male
  Weight: 54 kg

DRUGS (5)
  1. VIMPAT [Suspect]
     Active Substance: LACOSAMIDE
     Dosage: VIMPAT 300MG QAM, 300QHS, 100MG AT 5PM AT HOME, 3X/DAY (TID)
     Route: 048
     Dates: start: 2016
  2. LEVOTHROID [Concomitant]
     Active Substance: LEVOTHYROXINE SODIUM
     Dosage: 100 ?G, ONCE DAILY (QD)
     Dates: start: 2004
  3. ONFI [Concomitant]
     Active Substance: CLOBAZAM
     Indication: SEIZURE
     Dosage: 20 MG, 2X/DAY (BID)
     Route: 048
     Dates: start: 20151201
  4. VIMPAT [Suspect]
     Active Substance: LACOSAMIDE
     Indication: PRODUCT USED FOR UNKNOWN INDICATION
     Dosage: VIMPAT 300MG QAM, 300QHS, 100MG AT 5PM AT HOME, 3X/DAY (TID)
     Route: 048
     Dates: start: 201307, end: 2016
  5. FOLIC ACID. [Concomitant]
     Active Substance: FOLIC ACID
     Indication: PRODUCT USED FOR UNKNOWN INDICATION
     Dosage: UNK

REACTIONS (7)
  - Urinary tract infection [Recovered/Resolved]
  - Seizure [Recovering/Resolving]
  - Pyrexia [Recovered/Resolved]
  - Overdose [Unknown]
  - Off label use [Unknown]
  - Nephrolithiasis [Recovered/Resolved]
  - Pneumonia [Recovering/Resolving]

NARRATIVE: CASE EVENT DATE: 201307
